FAERS Safety Report 6757588-5 (Version None)
Quarter: 2010Q2

REPORT INFORMATION
  Report Type: 
  Country: None (occurrence: None)
  Receive Date: 20100607
  Receipt Date: 20100526
  Transmission Date: 20101027
  Serious: Yes (Other)
  Sender: FDA-Public Use
  Company Number: CA-JNJFOC-20100600597

PATIENT
  Sex: Female
  Weight: 98.6 kg

DRUGS (10)
  1. REMICADE [Suspect]
     Indication: COLITIS ULCERATIVE
     Route: 042
  2. REMICADE [Suspect]
     Dosage: 12TH INFUSION
     Route: 042
  3. REMICADE [Suspect]
     Route: 042
  4. VENLAFAXINE [Concomitant]
  5. YASMIN [Concomitant]
  6. IMURAN [Concomitant]
     Route: 048
  7. PERCOCET [Concomitant]
     Route: 048
  8. BENADRYL [Concomitant]
     Indication: PREMEDICATION
     Route: 048
  9. ACETAMINOPHEN [Concomitant]
     Indication: PREMEDICATION
     Route: 048
  10. SOLU-CORTEF [Concomitant]
     Indication: PREMEDICATION
     Route: 042

REACTIONS (8)
  - CHEST DISCOMFORT [None]
  - DRY EYE [None]
  - HYPOTENSION [None]
  - INFUSION RELATED REACTION [None]
  - PRURITUS [None]
  - THROAT TIGHTNESS [None]
  - URTICARIA [None]
  - VISION BLURRED [None]
